FAERS Safety Report 4600735-1 (Version None)
Quarter: 2005Q1

REPORT INFORMATION
  Report Type: 
  Country: None (occurrence: None)
  Receive Date: 20050304
  Receipt Date: 20050224
  Transmission Date: 20050727
  Serious: Yes (Death)
  Sender: FDA-Public Use
  Company Number: RS005016-J

PATIENT
  Age: 55 Year
  Sex: Male
  Weight: 54 kg

DRUGS (7)
  1. RABEPRAZOLE SODIUM [Suspect]
     Indication: REFLUX OESOPHAGITIS
     Dosage: 10 MG, 1 IN 1 D, ORAL
     Route: 048
     Dates: start: 20050207, end: 20050214
  2. HOKUNALIN: TAPE (TULOBUTEROL HYDROCHLORIDE) [Concomitant]
  3. SINGULAIR [Concomitant]
  4. AMOBAN (ZOPICLONE) [Concomitant]
  5. MEILAX (ETHYL LOFLAZEPATE) [Concomitant]
  6. PURSENNID (SENNA LEAF) [Concomitant]
  7. NAIXAN (NAPROXEN SODIUM) [Concomitant]

REACTIONS (2)
  - BLOOD GASES ABNORMAL [None]
  - NEUTROPENIA [None]
